FAERS Safety Report 11032266 (Version 4)
Quarter: 2016Q1

REPORT INFORMATION
  Report Type: Spontaneous
  Country: US (occurrence: US)
  Receive Date: 20150415
  Receipt Date: 20160316
  Transmission Date: 20160525
  Serious: Yes (Other)
  Sender: FDA-Public Use
  Company Number: US-GLAXOSMITHKLINE-US2015050830

PATIENT
  Age: 39 Year
  Sex: Male
  Weight: 117 kg

DRUGS (1)
  1. FLONASE ALLERGY RELIEF [Suspect]
     Active Substance: FLUTICASONE PROPIONATE
     Indication: HYPERSENSITIVITY
     Dosage: UNK
     Route: 045
     Dates: end: 20150408

REACTIONS (8)
  - Visual acuity reduced [Unknown]
  - Eye swelling [Not Recovered/Not Resolved]
  - Eye infection [Not Recovered/Not Resolved]
  - Macular oedema [Recovering/Resolving]
  - Ocular hyperaemia [Unknown]
  - Vision blurred [Recovering/Resolving]
  - Cutis laxa [Unknown]
  - Chorioretinopathy [Unknown]

NARRATIVE: CASE EVENT DATE: 20150408
